FAERS Safety Report 22058272 (Version 1)
Quarter: 2023Q1

REPORT INFORMATION
  Report Type: Spontaneous
  Country: JP (occurrence: JP)
  Receive Date: 20230303
  Receipt Date: 20230303
  Transmission Date: 20230418
  Serious: Yes (Hospitalization, Other)
  Sender: FDA-Public Use
  Company Number: JP-MSD-2302JPN003579JAA

PATIENT
  Age: 75 Year
  Sex: Male

DRUGS (10)
  1. KEYTRUDA [Suspect]
     Active Substance: PEMBROLIZUMAB
     Indication: Laryngeal cancer stage III
     Dosage: UNK
     Route: 065
     Dates: start: 20200805, end: 20200805
  2. KEYTRUDA [Suspect]
     Active Substance: PEMBROLIZUMAB
     Dosage: UNK
     Route: 065
     Dates: start: 20200901
  3. KEYTRUDA [Suspect]
     Active Substance: PEMBROLIZUMAB
     Dosage: UNK
     Route: 065
     Dates: start: 20201111
  4. KEYTRUDA [Suspect]
     Active Substance: PEMBROLIZUMAB
     Dosage: UNK
     Route: 065
     Dates: start: 20210126
  5. FLUOROURACIL [Suspect]
     Active Substance: FLUOROURACIL
     Indication: Laryngeal cancer stage III
     Dosage: UNK
     Route: 065
     Dates: start: 20200805, end: 20200805
  6. FLUOROURACIL [Suspect]
     Active Substance: FLUOROURACIL
     Dosage: UNK
     Route: 065
     Dates: start: 20200901
  7. FLUOROURACIL [Suspect]
     Active Substance: FLUOROURACIL
     Dosage: UNK
     Route: 065
     Dates: start: 20201111
  8. CISPLATIN [Suspect]
     Active Substance: CISPLATIN
     Indication: Laryngeal cancer stage III
     Dosage: UNK
     Route: 065
     Dates: start: 20200805, end: 20200805
  9. CISPLATIN [Suspect]
     Active Substance: CISPLATIN
     Dosage: UNK
     Route: 065
     Dates: start: 20200901
  10. CISPLATIN [Suspect]
     Active Substance: CISPLATIN
     Dosage: UNK
     Route: 065
     Dates: start: 20201111

REACTIONS (10)
  - Deep vein thrombosis [Recovered/Resolved]
  - Pneumonia aspiration [Recovering/Resolving]
  - Malignant neoplasm progression [Unknown]
  - Pulmonary embolism [Recovered/Resolved]
  - Interstitial lung disease [Recovering/Resolving]
  - Pain [Unknown]
  - Organising pneumonia [Recovering/Resolving]
  - Organising pneumonia [Unknown]
  - Staphylococcal infection [Unknown]
  - Neutrophil count decreased [Unknown]

NARRATIVE: CASE EVENT DATE: 20200826
